FAERS Safety Report 17879030 (Version 1)
Quarter: 2020Q2

REPORT INFORMATION
  Report Type: Spontaneous
  Country: US (occurrence: US)
  Receive Date: 20200609
  Receipt Date: 20200609
  Transmission Date: 20200714
  Serious: Yes (Hospitalization)
  Sender: FDA-Public Use
  Company Number: None

PATIENT
  Age: 58 Year
  Sex: Male

DRUGS (7)
  1. OCREVUS [Suspect]
     Active Substance: OCRELIZUMAB
     Indication: MULTIPLE SCLEROSIS
     Dosage: ?          OTHER FREQUENCY:Q6 MONTHS;?
     Route: 042
     Dates: start: 20180606
  2. DILANTIN [Suspect]
     Active Substance: PHENYTOIN
  3. VALACYCLOVIR [Suspect]
     Active Substance: VALACYCLOVIR HYDROCHLORIDE
  4. MODAFINIL. [Suspect]
     Active Substance: MODAFINIL
  5. VIMPAT [Suspect]
     Active Substance: LACOSAMIDE
  6. ARMODAFINIL. [Suspect]
     Active Substance: ARMODAFINIL
  7. PRAVASTATIN. [Suspect]
     Active Substance: PRAVASTATIN

REACTIONS (1)
  - Seizure [None]

NARRATIVE: CASE EVENT DATE: 20200608
